FAERS Safety Report 5127677-X (Version None)
Quarter: 2006Q4

REPORT INFORMATION
  Report Type: 
  Country: None (occurrence: None)
  Receive Date: 20061016
  Receipt Date: 20061003
  Transmission Date: 20070319
  Serious: Yes (Hospitalization)
  Sender: FDA-Public Use
  Company Number: PHMT2006CA01927

PATIENT
  Age: 64 Year
  Sex: Female

DRUGS (2)
  1. LOPRESSOR [Suspect]
     Route: 048
  2. OXYCODONE HCL [Concomitant]

REACTIONS (1)
  - OPIATES POSITIVE [None]
